FAERS Safety Report 9844968 (Version 1)
Quarter: 2014Q1

REPORT INFORMATION
  Report Type: Spontaneous
  Country: CA (occurrence: None)
  Receive Date: 20140122
  Receipt Date: 20140122
  Transmission Date: 20141002
  Serious: Yes (Death, Life-Threatening)
  Sender: FDA-Public Use
  Company Number: 2014AP000207

PATIENT
  Age: 78 Year
  Sex: Female

DRUGS (1)
  1. LEVOFLOXACIN [Suspect]

REACTIONS (9)
  - Shock [None]
  - Renal failure acute [None]
  - Haemodynamic instability [None]
  - Blood pressure systolic decreased [None]
  - Oxygen saturation decreased [None]
  - Pleural effusion [None]
  - Device malfunction [None]
  - Endocarditis [None]
  - Listeriosis [None]
